FAERS Safety Report 7725655-5 (Version None)
Quarter: 2011Q3

REPORT INFORMATION
  Report Type: 
  Country: None (occurrence: None)
  Receive Date: 20110902
  Receipt Date: 20110824
  Transmission Date: 20111222
  Serious: Yes (Other)
  Sender: FDA-Public Use
  Company Number: BE-AMGEN-BELSP2011036864

PATIENT
  Age: 50 Year
  Sex: Female

DRUGS (2)
  1. ALDACTAZINE [Concomitant]
     Indication: HYPERTENSION
     Dosage: 15 MG, 1X/DAY
     Route: 048
  2. ENBREL [Suspect]
     Indication: PSORIASIS
     Dosage: 50 MG, WEEKLY
     Route: 058
     Dates: start: 20110610

REACTIONS (4)
  - PSORIASIS [None]
  - INJECTION SITE ERYTHEMA [None]
  - OPEN WOUND [None]
  - ECZEMA [None]
